FAERS Safety Report 6291527-9 (Version None)
Quarter: 2009Q3

REPORT INFORMATION
  Report Type: 
  Country: None (occurrence: None)
  Receive Date: 20090730
  Receipt Date: 20090730
  Transmission Date: 20100115
  Serious: Yes (Death)
  Sender: FDA-Public Use
  Company Number: None

PATIENT
  Age: 56 Year
  Sex: Male
  Weight: 118.8424 kg

DRUGS (1)
  1. ACTOS [Suspect]
     Indication: DIABETES MELLITUS
     Dosage: 15 MG TWICE A DAY PO  MONTHS
     Route: 048

REACTIONS (4)
  - ARRHYTHMIA [None]
  - CARDIOMEGALY [None]
  - OEDEMA PERIPHERAL [None]
  - VENTRICULAR HYPERTROPHY [None]
